FAERS Safety Report 8139615-6 (Version None)
Quarter: 2012Q1

REPORT INFORMATION
  Report Type: 
  Country: None (occurrence: None)
  Receive Date: 20120215
  Receipt Date: 20120203
  Transmission Date: 20120608
  Serious: Yes (Hospitalization, Other)
  Sender: FDA-Public Use
  Company Number: PHEH2012US002298

PATIENT
  Sex: Female
  Weight: 69.388 kg

DRUGS (7)
  1. LEXAPRO [Concomitant]
  2. DOXEPIN HCL [Concomitant]
  3. WELLBUTRIN [Concomitant]
  4. DURAGESIC-100 [Concomitant]
     Route: 062
  5. GILENYA [Suspect]
     Indication: RELAPSING-REMITTING MULTIPLE SCLEROSIS
     Dosage: 0.5 MG, QD
     Route: 048
     Dates: start: 20101201
  6. ADDERALL 5 [Concomitant]
  7. BACLOFEN [Concomitant]

REACTIONS (9)
  - MENTAL DISORDER [None]
  - COGNITIVE DISORDER [None]
  - MOANING [None]
  - BLOOD PRESSURE INCREASED [None]
  - INSOMNIA [None]
  - FEELING JITTERY [None]
  - PERIPHERAL COLDNESS [None]
  - AGGRESSION [None]
  - ABNORMAL BEHAVIOUR [None]
